FAERS Safety Report 4428368-0 (Version None)
Quarter: 2004Q3

REPORT INFORMATION
  Report Type: 
  Country: None (occurrence: None)
  Receive Date: 20040813
  Receipt Date: 20040730
  Transmission Date: 20050211
  Serious: Yes (Hospitalization)
  Sender: FDA-Public Use
  Company Number: S04-SWI-03547-01

PATIENT
  Age: 82 Year
  Sex: Male

DRUGS (6)
  1. CIPRALEX (ESCITALOPRAM) [Suspect]
     Indication: DEPRESSION
     Dosage: 20 MG QD PO
     Route: 048
     Dates: end: 20040628
  2. PRAVASTATIN SODIUM [Suspect]
     Indication: HYPERCHOLESTEROLAEMIA
     Dosage: 20 MG QD PO
     Route: 048
     Dates: end: 20040628
  3. ENATEC (ENALAPRIL MALEATE) [Concomitant]
     Indication: HYPERTENSION
     Dosage: 10 MG QD PO
     Route: 048
     Dates: start: 20040101, end: 20040618
  4. TOREM (TORASEMIDE) [Concomitant]
  5. NEXIUM [Concomitant]
  6. ASPIRIN [Concomitant]

REACTIONS (4)
  - CARDIAC FAILURE [None]
  - HEPATOCELLULAR DAMAGE [None]
  - LIVER DISORDER [None]
  - THROMBOSIS [None]
